FAERS Safety Report 7539061-X (Version None)
Quarter: 2011Q2

REPORT INFORMATION
  Report Type: 
  Country: None (occurrence: None)
  Receive Date: 20110610
  Receipt Date: 20010123
  Transmission Date: 20111010
  Serious: Yes (Other)
  Sender: FDA-Public Use
  Company Number: PHHO2001BR10558

PATIENT
  Age: 44 Year
  Sex: Female

DRUGS (1)
  1. ESTRADIOL [Suspect]
     Dosage: 1 PATCH TWICE WEEKLY

REACTIONS (1)
  - ARRHYTHMIA [None]
